FAERS Safety Report 13873603 (Version 3)
Quarter: 2017Q3

REPORT INFORMATION
  Report Type: Spontaneous
  Country: US (occurrence: US)
  Receive Date: 20170816
  Receipt Date: 20170906
  Transmission Date: 20171127
  Serious: Yes (Other)
  Sender: FDA-Public Use
  Company Number: US-AMGEN-USASP2017121245

PATIENT
  Age: 71 Year
  Sex: Female
  Weight: 70.3 kg

DRUGS (1)
  1. PROLIA [Suspect]
     Active Substance: DENOSUMAB
     Indication: OSTEOPOROSIS POSTMENOPAUSAL
     Dosage: 60 MG, Q6MO
     Route: 058
     Dates: start: 20170130

REACTIONS (28)
  - Influenza like illness [Not Recovered/Not Resolved]
  - Erythema [Unknown]
  - Cough [Unknown]
  - Wheezing [Unknown]
  - Cystitis [Not Recovered/Not Resolved]
  - Hypoaesthesia [Unknown]
  - Feeling abnormal [Unknown]
  - Diverticulum intestinal [Unknown]
  - Burning sensation [Not Recovered/Not Resolved]
  - Back pain [Unknown]
  - Urinary tract infection [Not Recovered/Not Resolved]
  - Renal atrophy [Unknown]
  - Blood pressure decreased [Unknown]
  - Weight increased [Unknown]
  - Oropharyngeal pain [Unknown]
  - Urinary retention [Recovered/Resolved]
  - Toothache [Unknown]
  - Insomnia [Not Recovered/Not Resolved]
  - Headache [Unknown]
  - Rhinorrhoea [Unknown]
  - Pain [Unknown]
  - Atrioventricular septal defect [Unknown]
  - Citrobacter infection [Unknown]
  - Heart rate increased [Unknown]
  - Bladder spasm [Unknown]
  - Limb discomfort [Unknown]
  - Paraesthesia [Unknown]
  - Pollakiuria [Not Recovered/Not Resolved]

NARRATIVE: CASE EVENT DATE: 2017
